FAERS Safety Report 7314589-6 (Version None)
Quarter: 2011Q1

REPORT INFORMATION
  Report Type: 
  Country: None (occurrence: None)
  Receive Date: 20110225
  Receipt Date: 20101011
  Transmission Date: 20110831
  Serious: No
  Sender: FDA-Public Use
  Company Number: US-MYLANLABS-2010S1018675

PATIENT
  Age: 19 Year
  Sex: Male

DRUGS (2)
  1. AMNESTEEM [Suspect]
     Indication: ACNE
     Route: 048
     Dates: start: 20100601, end: 20100901
  2. CLARAVIS [Suspect]
     Indication: ACNE
     Route: 048
     Dates: start: 20100501, end: 20100601

REACTIONS (4)
  - DEHYDRATION [None]
  - DRY EYE [None]
  - LIP DRY [None]
  - VIRAL INFECTION [None]
